FAERS Safety Report 6640508-1 (Version None)
Quarter: 2010Q1

REPORT INFORMATION
  Report Type: 
  Country: None (occurrence: None)
  Receive Date: 20100318
  Receipt Date: 20100309
  Transmission Date: 20100710
  Serious: Yes (Hospitalization)
  Sender: FDA-Public Use
  Company Number: GXKR2010DE02743

PATIENT
  Sex: Female
  Weight: 78 kg

DRUGS (2)
  1. AMBRODOXY (NGX) [Suspect]
     Dosage: 1 DF, QD
     Route: 048
     Dates: start: 20090918, end: 20090919
  2. THYROID HORMONES [Concomitant]
     Route: 048

REACTIONS (6)
  - ANAEMIA [None]
  - CARDIOVASCULAR DISORDER [None]
  - HEADACHE [None]
  - LOCALISED OEDEMA [None]
  - TACHYCARDIA [None]
  - THIRST [None]
